FAERS Safety Report 19213554 (Version 5)
Quarter: 2021Q4

REPORT INFORMATION
  Report Type: Spontaneous
  Country: CA (occurrence: CA)
  Receive Date: 20210504
  Receipt Date: 20211202
  Transmission Date: 20220303
  Serious: Yes (Other)
  Sender: FDA-Public Use
  Company Number: CA-SA-SAC20210427000963

PATIENT
  Age: 40 Year
  Sex: Male

DRUGS (50)
  1. FLOMAX [Suspect]
     Active Substance: TAMSULOSIN HYDROCHLORIDE
     Indication: Secondary progressive multiple sclerosis
     Dosage: UNK
     Route: 048
  2. BISOPROLOL FUMARATE\HYDROCHLOROTHIAZIDE [Suspect]
     Active Substance: BISOPROLOL FUMARATE\HYDROCHLOROTHIAZIDE
     Indication: Secondary progressive multiple sclerosis
     Dosage: UNK
     Route: 048
  3. BACLOFEN [Suspect]
     Active Substance: BACLOFEN
     Indication: Product used for unknown indication
     Dosage: 30 MG, Q8H
     Route: 048
  4. BACLOFEN [Suspect]
     Active Substance: BACLOFEN
     Indication: Product used for unknown indication
     Dosage: 10 MG, QD
     Route: 048
  5. BACLOFEN [Suspect]
     Active Substance: BACLOFEN
     Dosage: 30 MG, Q8H
     Route: 048
  6. BACLOFEN [Suspect]
     Active Substance: BACLOFEN
     Dosage: 10 MG, ONCE DAILY
     Route: 048
  7. ROSUVASTATIN CALCIUM [Suspect]
     Active Substance: ROSUVASTATIN CALCIUM
     Indication: Product used for unknown indication
     Dosage: 5 MG, QD
     Route: 048
  8. AMLODIPINE BESYLATE [Suspect]
     Active Substance: AMLODIPINE BESYLATE
     Indication: Secondary progressive multiple sclerosis
     Dosage: 10 MG, QD
     Route: 048
  9. BISOPROLOL [Suspect]
     Active Substance: BISOPROLOL
     Indication: Secondary progressive multiple sclerosis
     Route: 048
  10. LORAZEPAM [Suspect]
     Active Substance: LORAZEPAM
     Indication: Product used for unknown indication
     Dosage: UNK
     Route: 048
  11. RABEPRAZOLE SODIUM [Suspect]
     Active Substance: RABEPRAZOLE SODIUM
     Indication: Secondary progressive multiple sclerosis
     Dosage: 20 MG, QD
     Route: 048
  12. GABAPENTIN [Suspect]
     Active Substance: GABAPENTIN
     Indication: Product used for unknown indication
     Dosage: 100 MG, QD
     Route: 065
  13. MIRAPEX [Suspect]
     Active Substance: PRAMIPEXOLE DIHYDROCHLORIDE
     Indication: Secondary progressive multiple sclerosis
     Dosage: 0.25 MG
     Route: 048
  14. AMLODIPINE BESYLATE\LISINOPRIL [Suspect]
     Active Substance: AMLODIPINE BESYLATE\LISINOPRIL
     Indication: Secondary progressive multiple sclerosis
     Dosage: 10 MG, QD
     Route: 048
  15. AMLODIPINE BESYLATE\LISINOPRIL [Suspect]
     Active Substance: AMLODIPINE BESYLATE\LISINOPRIL
     Dosage: 10 MG, QD
     Route: 048
  16. DOXEPIN HYDROCHLORIDE [Suspect]
     Active Substance: DOXEPIN HYDROCHLORIDE
     Indication: Product used for unknown indication
     Dosage: 6 MG, QD
     Route: 065
  17. LORAZEPAM [Suspect]
     Active Substance: LORAZEPAM
     Indication: Product used for unknown indication
     Dosage: 3 DF, QD
     Route: 048
  18. TEMAZEPAM [Suspect]
     Active Substance: TEMAZEPAM
     Route: 048
  19. MAYZENT [Suspect]
     Active Substance: SIPONIMOD
     Indication: Secondary progressive multiple sclerosis
     Dosage: 3 DF, QD
     Route: 065
  20. MAYZENT [Suspect]
     Active Substance: SIPONIMOD
     Indication: Secondary progressive multiple sclerosis
     Dosage: 3 DF, QD
  21. PRAMIPEXOLE [Suspect]
     Active Substance: PRAMIPEXOLE
     Indication: Secondary progressive multiple sclerosis
     Dosage: 0.25 MG, QD
     Route: 048
  22. PRAMIPEXOLE [Suspect]
     Active Substance: PRAMIPEXOLE
     Indication: Secondary progressive multiple sclerosis
     Dosage: 0.25 MG, QD
     Route: 048
  23. INTERFERON BETA [Suspect]
     Active Substance: INTERFERON BETA
     Indication: Product used for unknown indication
     Route: 058
  24. INTERFERON BETA [Suspect]
     Active Substance: INTERFERON BETA
     Dosage: UNK UNK, UNKNOWN FREQ.;
     Route: 058
  25. AMLODIPINE MESYLATE [Suspect]
     Active Substance: AMLODIPINE MESYLATE
     Indication: Secondary progressive multiple sclerosis
     Dosage: 10 MG, QD
     Route: 048
  26. AMLODIPINE [Suspect]
     Active Substance: AMLODIPINE BESYLATE
     Indication: Secondary progressive multiple sclerosis
     Dosage: 10 MG, QD
     Route: 048
  27. TECFIDERA [Suspect]
     Active Substance: DIMETHYL FUMARATE
     Indication: Product used for unknown indication
     Dosage: UNK UNK, UNKNOWN FREQ.
  28. REBIF [Suspect]
     Active Substance: INTERFERON BETA-1A
     Indication: Product used for unknown indication
     Dosage: UNK
     Route: 058
  29. REBIF [Suspect]
     Active Substance: INTERFERON BETA-1A
     Route: 058
  30. ASPIRIN [Concomitant]
     Active Substance: ASPIRIN
     Dosage: UNK
  31. ALLOPURINOL;BENZBROMARONE [Concomitant]
     Dosage: 100 MG, QD
     Route: 048
  32. ALLOPURINOL;BENZBROMARONE [Concomitant]
  33. ATIVAN [Concomitant]
     Active Substance: LORAZEPAM
     Indication: Product used for unknown indication
     Dosage: 0.5 MG, QD
  34. ATIVAN [Concomitant]
     Active Substance: LORAZEPAM
  35. CALCIUM [Concomitant]
     Active Substance: CALCIUM
     Indication: Product used for unknown indication
     Dosage: UNK
  36. INDAPAMIDE\PERINDOPRIL ARGININE [Concomitant]
     Active Substance: INDAPAMIDE\PERINDOPRIL ARGININE
     Dosage: UNK
  37. DALFAMPRIDINE [Concomitant]
     Active Substance: DALFAMPRIDINE
     Indication: Product used for unknown indication
     Dosage: 10 MG, QD
  38. DALFAMPRIDINE [Concomitant]
     Active Substance: DALFAMPRIDINE
  39. RABEPRAZOLE SODIUM [Concomitant]
     Active Substance: RABEPRAZOLE SODIUM
     Indication: Product used for unknown indication
  40. VITAMIN D3 [Concomitant]
     Active Substance: CHOLECALCIFEROL
     Indication: Product used for unknown indication
     Dosage: UNK
  41. VITAMIN D3 [Concomitant]
     Active Substance: CHOLECALCIFEROL
  42. INDAPAMIDE\PERINDOPRIL [Concomitant]
     Active Substance: INDAPAMIDE\PERINDOPRIL
     Indication: Product used for unknown indication
     Dosage: 4 MG, QD
  43. INDAPAMIDE\PERINDOPRIL [Concomitant]
     Active Substance: INDAPAMIDE\PERINDOPRIL
  44. CALCIUM PANTOTHENATE [Concomitant]
     Active Substance: CALCIUM PANTOTHENATE
  45. CALCIUM PANTOTHENATE [Concomitant]
     Active Substance: CALCIUM PANTOTHENATE
  46. ACETYLSALICYLIC ACID;CODEINE [Concomitant]
     Dosage: 81 MG, QD
  47. CALCIUM ASCORBAT [Concomitant]
  48. VITAMIN B COMPLEX [Concomitant]
     Active Substance: CYANOCOBALAMIN\DEXPANTHENOL\NIACINAMIDE\PYRIDOXINE HYDROCHLORIDE\RIBOFLAVIN 5^-PHOSPHATE SODIUM\THIA
     Indication: Product used for unknown indication
  49. VITAMIN B COMPLEX [Concomitant]
     Active Substance: CYANOCOBALAMIN\DEXPANTHENOL\NIACINAMIDE\PYRIDOXINE HYDROCHLORIDE\RIBOFLAVIN 5^-PHOSPHATE SODIUM\THIA
  50. CILAZAPRIL ANHYDROUS [Suspect]
     Active Substance: CILAZAPRIL ANHYDROUS

REACTIONS (26)
  - Central nervous system lesion [Unknown]
  - Bradycardia [Unknown]
  - Erectile dysfunction [Unknown]
  - Multiple sclerosis relapse [Unknown]
  - Relapsing-remitting multiple sclerosis [Unknown]
  - Monoparesis [Unknown]
  - Fall [Unknown]
  - Anxiety [Unknown]
  - Ataxia [Unknown]
  - Balance disorder [Unknown]
  - Dysarthria [Unknown]
  - Gait spastic [Unknown]
  - Hypertonic bladder [Unknown]
  - Hypoaesthesia [Unknown]
  - Insomnia [Unknown]
  - Memory impairment [Unknown]
  - Micturition urgency [Unknown]
  - Movement disorder [Unknown]
  - Muscle spasticity [Unknown]
  - Needle fatigue [Unknown]
  - Nocturia [Unknown]
  - Pain [Unknown]
  - Pollakiuria [Unknown]
  - Dizziness [Unknown]
  - Product use in unapproved indication [Unknown]
  - Off label use [Unknown]
